FAERS Safety Report 8240058-5 (Version None)
Quarter: 2012Q1

REPORT INFORMATION
  Report Type: 
  Country: None (occurrence: None)
  Receive Date: 20120328
  Receipt Date: 20120307
  Transmission Date: 20120608
  Serious: No
  Sender: FDA-Public Use
  Company Number: US-ROXANE LABORATORIES, INC.-2012-RO-00808RO

PATIENT
  Sex: Female

DRUGS (5)
  1. PREVACID [Concomitant]
  2. ALLEGRA [Concomitant]
  3. PRILOSEC [Concomitant]
  4. CLOTRIMAZOLE [Suspect]
     Indication: CANDIDIASIS
     Route: 048
     Dates: start: 20120306, end: 20120306
  5. SIMVASTATIN [Concomitant]

REACTIONS (1)
  - BACK PAIN [None]
